FAERS Safety Report 12909822 (Version 1)
Quarter: 2016Q4

REPORT INFORMATION
  Report Type: Spontaneous
  Country: US (occurrence: US)
  Receive Date: 20161104
  Receipt Date: 20161104
  Transmission Date: 20170207
  Serious: No
  Sender: FDA-Public Use
  Company Number: US-B.I. PHARMACEUTICALS,INC./RIDGEFIELD-2016-BI-069689

PATIENT
  Age: 79 Year
  Sex: Female

DRUGS (1)
  1. SPIRIVA [Suspect]
     Active Substance: TIOTROPIUM BROMIDE MONOHYDRATE
     Indication: BIOPSY LUNG
     Route: 055
     Dates: start: 201510

REACTIONS (2)
  - Vision blurred [Unknown]
  - Dyspnoea [Unknown]

NARRATIVE: CASE EVENT DATE: 201510
